FAERS Safety Report 25683277 (Version 1)
Quarter: 2025Q3

REPORT INFORMATION
  Report Type: Spontaneous
  Country: CN (occurrence: CN)
  Receive Date: 20250814
  Receipt Date: 20250814
  Transmission Date: 20251021
  Serious: Yes (Hospitalization, Disabling)
  Sender: NOVARTIS
  Company Number: CN-002147023-NVSC2025CN125831

PATIENT
  Age: 59 Year
  Sex: Male

DRUGS (2)
  1. TRAMETINIB [Suspect]
     Active Substance: TRAMETINIB
     Indication: Lung neoplasm malignant
     Dosage: 2 MG, QD
     Route: 048
     Dates: start: 20250708, end: 20250713
  2. DACOMITINIB [Concomitant]
     Active Substance: DACOMITINIB
     Indication: Product used for unknown indication
     Route: 065
     Dates: start: 20250708

REACTIONS (9)
  - Dermatitis [Recovering/Resolving]
  - Erythema [Unknown]
  - Skin exfoliation [Recovering/Resolving]
  - Dry skin [Unknown]
  - Dermatitis exfoliative generalised [Unknown]
  - Pyrexia [Recovering/Resolving]
  - Catheter site extravasation [Unknown]
  - Blood pressure fluctuation [Unknown]
  - Mental status changes [Unknown]

NARRATIVE: CASE EVENT DATE: 20250713
